FAERS Safety Report 15672659 (Version 5)
Quarter: 2020Q1

REPORT INFORMATION
  Report Type: Report from Study
  Country: US (occurrence: US)
  Receive Date: 20181129
  Receipt Date: 20200103
  Transmission Date: 20200409
  Serious: Yes (Other)
  Sender: FDA-Public Use
  Company Number: US-TESARO-US-2018TSO00958

PATIENT
  Age: 61 Year
  Sex: Female
  Weight: 66 kg

DRUGS (17)
  1. NIRAPARIB CAPSULE [Suspect]
     Active Substance: NIRAPARIB
     Dosage: 200 MG, QPM WITHOUT FOOD.
  2. ESCITALOPRAM OXALATE. [Concomitant]
     Active Substance: ESCITALOPRAM OXALATE
     Indication: PRODUCT USED FOR UNKNOWN INDICATION
     Dosage: 10 MG, QD
     Route: 048
  3. NIRAPARIB CAPSULE [Suspect]
     Active Substance: NIRAPARIB
     Indication: OVARIAN CANCER
     Dosage: 200 MG, UNK
     Route: 048
     Dates: start: 20171218
  4. NIRAPARIB CAPSULE [Suspect]
     Active Substance: NIRAPARIB
     Dosage: 200 MG, QD
     Route: 048
     Dates: start: 201808
  5. NIRAPARIB CAPSULE [Suspect]
     Active Substance: NIRAPARIB
     Dosage: 100 MG, QPM WITH DINNER
     Route: 048
  6. ATIVAN [Concomitant]
     Active Substance: LORAZEPAM
     Indication: PRODUCT USED FOR UNKNOWN INDICATION
     Dosage: 0.5 MG, EVERY SIX HOURS AS NEEDED
     Route: 048
  7. IRON [Concomitant]
     Active Substance: IRON
     Indication: PRODUCT USED FOR UNKNOWN INDICATION
     Dosage: 142 MG, QD
     Route: 048
  8. NIRAPARIB CAPSULE [Suspect]
     Active Substance: NIRAPARIB
     Dosage: 100 MG, QD
     Route: 048
     Dates: start: 201801
  9. NIRAPARIB CAPSULE [Suspect]
     Active Substance: NIRAPARIB
     Dosage: 300 MG, QD
     Route: 048
     Dates: end: 20191010
  10. NIRAPARIB CAPSULE [Suspect]
     Active Substance: NIRAPARIB
     Dosage: 200 MG, QD
     Route: 048
     Dates: start: 20180227
  11. NIRAPARIB CAPSULE [Suspect]
     Active Substance: NIRAPARIB
     Dosage: 100 MG, QOD
     Route: 048
  12. NIRAPARIB CAPSULE [Suspect]
     Active Substance: NIRAPARIB
     Dosage: ALTERNATING 2 CAPSULES AND 1 CAPSULE DAILY
     Route: 048
     Dates: start: 201809
  13. LISINOPRIL. [Concomitant]
     Active Substance: LISINOPRIL
     Indication: PRODUCT USED FOR UNKNOWN INDICATION
     Dosage: 5 MG, QD
     Route: 048
  14. LEXAPRO [Concomitant]
     Active Substance: ESCITALOPRAM OXALATE
     Indication: PRODUCT USED FOR UNKNOWN INDICATION
     Dosage: 10 MG, TABLET ONCE A DAY
     Route: 048
  15. FERRALET [Concomitant]
     Indication: PRODUCT USED FOR UNKNOWN INDICATION
     Dosage: 1 MG, QD AFTER A MEAL
     Route: 048
  16. NIRAPARIB CAPSULE [Suspect]
     Active Substance: NIRAPARIB
     Dosage: 100 MG, QPM AT 9 PM
     Route: 048
     Dates: start: 20190102
  17. LETROZOLE. [Concomitant]
     Active Substance: LETROZOLE
     Indication: PRODUCT USED FOR UNKNOWN INDICATION
     Dosage: 2.5 MG, QD

REACTIONS (24)
  - Recurrent cancer [Unknown]
  - Heart rate increased [Not Recovered/Not Resolved]
  - Platelet count decreased [Recovered/Resolved]
  - Dyspnoea [Unknown]
  - Intentional underdose [Unknown]
  - Blood pressure increased [Recovering/Resolving]
  - Nausea [Not Recovered/Not Resolved]
  - Renal atrophy [Unknown]
  - Red blood cell count decreased [Not Recovered/Not Resolved]
  - Palpitations [Unknown]
  - Inappropriate schedule of product administration [Unknown]
  - Middle insomnia [Not Recovered/Not Resolved]
  - White blood cell count decreased [Not Recovered/Not Resolved]
  - Decreased appetite [Not Recovered/Not Resolved]
  - Insomnia [Not Recovered/Not Resolved]
  - Fatigue [Not Recovered/Not Resolved]
  - Asthenia [Unknown]
  - Haemoglobin decreased [Not Recovered/Not Resolved]
  - Hydronephrosis [Unknown]
  - Pelvic mass [Unknown]
  - Stress [Unknown]
  - Dizziness [Unknown]
  - Anxiety [Unknown]
  - Feeling abnormal [Unknown]

NARRATIVE: CASE EVENT DATE: 20171218
